FAERS Safety Report 5757147-7 (Version None)
Quarter: 2008Q2

REPORT INFORMATION
  Report Type: 
  Country: None (occurrence: None)
  Receive Date: 20080603
  Receipt Date: 20080523
  Transmission Date: 20081010
  Serious: Yes (Other)
  Sender: FDA-Public Use
  Company Number: US-JNJFOC-20080505243

PATIENT
  Sex: Male
  Weight: 63.5 kg

DRUGS (7)
  1. FENTANYL TRANSDERMAL SYSTEM [Suspect]
     Indication: BACK PAIN
     Route: 062
  2. DURAGESIC-100 [Suspect]
     Route: 062
  3. DURAGESIC-100 [Suspect]
     Indication: BACK PAIN
     Route: 062
  4. AMBIEN CR [Suspect]
     Indication: SLEEP DISORDER
     Route: 048
  5. SEROQUEL [Concomitant]
     Indication: SLEEP DISORDER
     Route: 048
  6. GABAPENTIN [Concomitant]
     Indication: NEURALGIA
     Route: 048
  7. OXYCODONE HCL [Concomitant]
     Indication: BREAKTHROUGH PAIN
     Route: 048

REACTIONS (15)
  - ABASIA [None]
  - APHASIA [None]
  - DEVICE LEAKAGE [None]
  - DRUG EFFECT INCREASED [None]
  - DRUG INEFFECTIVE [None]
  - ENERGY INCREASED [None]
  - FALL [None]
  - FEELING ABNORMAL [None]
  - GAIT DISTURBANCE [None]
  - HALLUCINATION [None]
  - LETHARGY [None]
  - MYDRIASIS [None]
  - NAUSEA [None]
  - OVERDOSE [None]
  - PSYCHOMOTOR HYPERACTIVITY [None]
